FAERS Safety Report 5453213-4 (Version None)
Quarter: 2007Q3

REPORT INFORMATION
  Report Type: 
  Country: None (occurrence: None)
  Receive Date: 20070914
  Receipt Date: 20070904
  Transmission Date: 20080115
  Serious: Yes (Other)
  Sender: FDA-Public Use
  Company Number: GB-PFIZER INC-2007074453

PATIENT
  Age: 61 Year
  Sex: Female
  Weight: 71.5 kg

DRUGS (5)
  1. VARENICLINE TABLETS [Suspect]
     Indication: SMOKING CESSATION THERAPY
     Route: 048
     Dates: start: 20070425, end: 20070508
  2. FLIXOTIDE ^GLAXO^ [Concomitant]
     Route: 055
  3. FLUOXETINE HCL [Concomitant]
     Route: 048
  4. NICOTINE [Concomitant]
     Route: 055
     Dates: start: 20070316, end: 20070418
  5. SERETIDE [Concomitant]
     Route: 055

REACTIONS (1)
  - URTICARIA [None]
